FAERS Safety Report 4833503-6 (Version None)
Quarter: 2005Q4

REPORT INFORMATION
  Report Type: 
  Country: None (occurrence: None)
  Receive Date: 20051121
  Receipt Date: 20051111
  Transmission Date: 20060501
  Serious: Yes (Death, Hospitalization)
  Sender: FDA-Public Use
  Company Number: PHBS2005BE16688

PATIENT
  Age: 52 Year
  Sex: Male

DRUGS (2)
  1. NEORAL [Suspect]
     Indication: PSORIASIS
     Dosage: 300 MG/DAY
     Route: 048
     Dates: start: 19981201, end: 19990501
  2. NEORAL [Suspect]
     Dosage: 200 MG/DAY
     Route: 048

REACTIONS (3)
  - SMALL INTESTINE CARCINOMA [None]
  - SMALL INTESTINE OPERATION [None]
  - WEIGHT DECREASED [None]
